FAERS Safety Report 8295672-8 (Version None)
Quarter: 2012Q2

REPORT INFORMATION
  Report Type: 
  Country: None (occurrence: None)
  Receive Date: 20120418
  Receipt Date: 20120412
  Transmission Date: 20120825
  Serious: Yes (Hospitalization, Other)
  Sender: FDA-Public Use
  Company Number: US-MERCK-1109USA01766

PATIENT
  Age: 59 Year
  Sex: Female
  Weight: 85 kg

DRUGS (18)
  1. ACTONEL [Suspect]
     Route: 048
     Dates: start: 20020701, end: 20030101
  2. ACTONEL [Suspect]
     Route: 048
     Dates: start: 20070601, end: 20071001
  3. PREMARIN [Concomitant]
     Route: 065
  4. FOSAMAX [Suspect]
     Route: 048
  5. ACTONEL [Suspect]
     Indication: OSTEOPENIA
     Route: 048
     Dates: start: 20020501, end: 20020701
  6. FOSAMAX [Suspect]
     Route: 048
     Dates: start: 20010601, end: 20020401
  7. VITAMINS (UNSPECIFIED) [Concomitant]
     Route: 065
     Dates: start: 20000101
  8. PREMPRO [Concomitant]
     Route: 065
     Dates: end: 20020101
  9. FOSAMAX [Suspect]
     Indication: OSTEOPENIA
     Route: 048
     Dates: start: 20000701, end: 20010501
  10. FOSAMAX [Suspect]
     Route: 048
     Dates: start: 20010601, end: 20020401
  11. FOSAMAX [Suspect]
     Route: 048
     Dates: start: 20030101, end: 20060801
  12. FOSAMAX [Suspect]
     Indication: OSTEOPOROSIS
     Route: 048
     Dates: start: 20000701, end: 20010501
  13. PROVERA [Concomitant]
     Route: 065
  14. FOSAMAX [Suspect]
     Route: 048
     Dates: start: 20030101, end: 20060801
  15. TETRACYCLINE [Concomitant]
     Route: 065
  16. CALCIUM (UNSPECIFIED) [Concomitant]
     Indication: OSTEOPENIA
     Route: 065
     Dates: start: 20000101
  17. OMEGA-3 MARINE TRIGLYCERIDES [Concomitant]
     Route: 065
     Dates: start: 20000101
  18. VITAMIN D (UNSPECIFIED) [Concomitant]
     Indication: OSTEOPENIA
     Route: 065
     Dates: start: 20000101

REACTIONS (38)
  - FEMUR FRACTURE [None]
  - DUODENITIS [None]
  - SEBORRHOEIC KERATOSIS [None]
  - CARDIAC DISORDER [None]
  - HAEMORRHOIDS [None]
  - VASCULAR SKIN DISORDER [None]
  - CATARACT [None]
  - GASTROOESOPHAGEAL REFLUX DISEASE [None]
  - BREAST MASS [None]
  - SUPRAVENTRICULAR TACHYCARDIA [None]
  - SINOBRONCHITIS [None]
  - PAPULE [None]
  - LICHENOID KERATOSIS [None]
  - PULMONARY EMBOLISM [None]
  - ABDOMINAL PAIN LOWER [None]
  - LOWER LIMB FRACTURE [None]
  - IRRITABLE BOWEL SYNDROME [None]
  - MELANOCYTIC NAEVUS [None]
  - FALL [None]
  - DIVERTICULUM [None]
  - DIARRHOEA [None]
  - COLONIC POLYP [None]
  - BASAL CELL CARCINOMA [None]
  - IMPAIRED HEALING [None]
  - HYPERTENSION [None]
  - HIATUS HERNIA [None]
  - VARICOSE VEIN [None]
  - EYELID CYST [None]
  - HAEMANGIOMA [None]
  - SLEEP DISORDER [None]
  - DEEP VEIN THROMBOSIS [None]
  - FIBROCYSTIC BREAST DISEASE [None]
  - CUTIS LAXA [None]
  - HAEMATOMA [None]
  - SKIN PAPILLOMA [None]
  - TEMPOROMANDIBULAR JOINT SYNDROME [None]
  - EYE DISORDER [None]
  - DEPRESSED MOOD [None]
